FAERS Safety Report 4657543-5 (Version None)
Quarter: 2005Q2

REPORT INFORMATION
  Report Type: 
  Country: None (occurrence: None)
  Receive Date: 20050405
  Receipt Date: 20041209
  Transmission Date: 20051028
  Serious: Yes (Other)
  Sender: FDA-Public Use
  Company Number: 2004089392

PATIENT
  Age: 43 Year
  Sex: Female

DRUGS (5)
  1. GEODON [Suspect]
     Indication: ANGER
     Dosage: 80 MG (40 MG,2 IN 1 D),ORAL
     Route: 048
     Dates: start: 20041101, end: 20041103
  2. GEODON [Suspect]
     Indication: IRRITABILITY
     Dosage: 80 MG (40 MG,2 IN 1 D),ORAL
     Route: 048
     Dates: start: 20041101, end: 20041103
  3. BENZTROPINE MESYLATE [Suspect]
     Indication: ILL-DEFINED DISORDER
  4. OXCARBAZEPINE (OXCARBAZEPINE) [Concomitant]
  5. FLUOXETINE HCL [Concomitant]

REACTIONS (2)
  - ADVERSE DRUG REACTION [None]
  - DYSTONIA [None]
